FAERS Safety Report 8218061-0 (Version None)
Quarter: 2012Q1

REPORT INFORMATION
  Report Type: 
  Country: None (occurrence: None)
  Receive Date: 20120319
  Receipt Date: 20120314
  Transmission Date: 20120608
  Serious: Yes (Other)
  Sender: FDA-Public Use
  Company Number: US-PFIZER INC-2011292047

PATIENT
  Sex: Male

DRUGS (2)
  1. CHANTIX [Suspect]
     Dosage: STARTER PACK AND CONTINUING PACKS
     Dates: start: 20090101, end: 20090726
  2. CHANTIX [Suspect]
     Indication: SMOKING CESSATION THERAPY
     Dosage: STARTER PACK AND CONTINUING PACKS
     Dates: start: 20070323, end: 20070301

REACTIONS (2)
  - LOSS OF CONSCIOUSNESS [None]
  - AGGRESSION [None]
